FAERS Safety Report 18713322 (Version 5)
Quarter: 2022Q1

REPORT INFORMATION
  Report Type: Spontaneous
  Country: US (occurrence: US)
  Receive Date: 20210107
  Receipt Date: 20220216
  Transmission Date: 20220424
  Serious: No
  Sender: FDA-Public Use
  Company Number: US-PFIZER INC-2021007640

PATIENT
  Age: 83 Year
  Sex: Female
  Weight: 73 kg

DRUGS (13)
  1. TOVIAZ [Suspect]
     Active Substance: FESOTERODINE FUMARATE
     Dosage: 8 MG, 1X/DAY
     Dates: end: 202007
  2. LOSARTAN POTASSIUM [Concomitant]
     Active Substance: LOSARTAN POTASSIUM
     Dosage: 100 MG, 1X/DAY
     Dates: start: 2005, end: 202101
  3. GLIMEPIRIDE [Concomitant]
     Active Substance: GLIMEPIRIDE
     Dosage: 1 MG (INT AT BREAKFAST)
     Dates: start: 2005, end: 202101
  4. GLIMEPIRIDE [Concomitant]
     Active Substance: GLIMEPIRIDE
     Dosage: 2MG UNK (SUPPER)
  5. AMLODIPINE [Concomitant]
     Active Substance: AMLODIPINE BESYLATE
     Dosage: 10 MG (1 IN AFTERNOON)
     Dates: start: 2005, end: 202101
  6. FENOFIBRATE [Concomitant]
     Active Substance: FENOFIBRATE
     Dosage: 145 MG
     Dates: start: 2005, end: 202101
  7. MINERALS\VITAMINS [Concomitant]
     Active Substance: MINERALS\VITAMINS
     Dosage: UNK, 2X/DAY
     Dates: start: 2005, end: 202101
  8. FUROSEMIDE [Concomitant]
     Active Substance: FUROSEMIDE
     Indication: Swelling
     Dosage: 40 MG, AS NEEDED
     Dates: start: 2005, end: 202101
  9. NEXIUM 24HR [Concomitant]
     Active Substance: ESOMEPRAZOLE MAGNESIUM
     Dosage: 22.3 MG, 1X/DAY (WITH BREAKFAST)
     Dates: start: 2005, end: 202101
  10. MECLIZINE HYDROCHLORIDE [Concomitant]
     Active Substance: MECLIZINE HYDROCHLORIDE
     Dosage: 25 MG (CAD 1 TABLET W/IN 24 HRS)
     Dates: start: 2005, end: 202101
  11. FLUTICASONE PROPIONATE [Concomitant]
     Active Substance: FLUTICASONE PROPIONATE
     Dosage: 50 UG
     Dates: start: 2005, end: 202101
  12. CLOTRIMAZOLE AND BETAMETHASONE DIPROPIONATE [Concomitant]
     Active Substance: BETAMETHASONE\BETAMETHASONE DIPROPIONATE\CLOTRIMAZOLE
     Dosage: UNK
     Dates: start: 2005, end: 202101
  13. HYDROXIZINE HCL [Concomitant]
     Dosage: 25 MG, 1X/DAY (ONCE AT BEDTIME)
     Dates: start: 2005, end: 202101

REACTIONS (1)
  - Amnesia [Unknown]
